FAERS Safety Report 13895897 (Version 1)
Quarter: 2017Q3

REPORT INFORMATION
  Report Type: Spontaneous
  Country: US (occurrence: US)
  Receive Date: 20170821
  Receipt Date: 20170821
  Transmission Date: 20171127
  Serious: Yes (Other)
  Sender: FDA-Public Use
  Company Number: None

PATIENT
  Sex: Male
  Weight: 128.25 kg

DRUGS (5)
  1. CBD, BATCH# TRU4720, PRODUCT# TRU4808, HARVEST# TRU4720 [Suspect]
     Active Substance: CANNABIDIOL
     Indication: ANGER
     Dosage: ?          QUANTITY:320 INHALATION(S);?
     Route: 055
     Dates: start: 20170810, end: 20170817
  2. LATUDA [Concomitant]
     Active Substance: LURASIDONE HYDROCHLORIDE
  3. CBD, BATCH# TRU4720, PRODUCT# TRU4808, HARVEST# TRU4720 [Suspect]
     Active Substance: CANNABIDIOL
     Indication: AFFECTIVE DISORDER
     Dosage: ?          QUANTITY:320 INHALATION(S);?
     Route: 055
     Dates: start: 20170810, end: 20170817
  4. HEMP OIL [Concomitant]
     Active Substance: CANNABIS SATIVA SEED OIL
  5. LAMICTAL [Concomitant]
     Active Substance: LAMOTRIGINE

REACTIONS (5)
  - Hallucination, visual [None]
  - Psychotic disorder [None]
  - Depression [None]
  - Drug dispensing error [None]
  - Product label issue [None]

NARRATIVE: CASE EVENT DATE: 20170810
